FAERS Safety Report 24626039 (Version 1)
Quarter: 2024Q4

REPORT INFORMATION
  Report Type: Spontaneous
  Country: US (occurrence: US)
  Receive Date: 20241115
  Receipt Date: 20241115
  Transmission Date: 20250115
  Serious: Yes (Other)
  Sender: PRAGMA PHARMACEUTICALS
  Company Number: US-PRAGMA-2024-US-060337

PATIENT
  Age: 17 Year
  Sex: Male

DRUGS (4)
  1. CEPHALEXIN [Suspect]
     Active Substance: CEPHALEXIN
     Indication: Product used for unknown indication
  2. DIPHENHYDRAMINE [Concomitant]
     Active Substance: DIPHENHYDRAMINE
  3. PREDNISONE [Concomitant]
     Active Substance: PREDNISONE
  4. AMOXICILLIN [Concomitant]
     Active Substance: AMOXICILLIN

REACTIONS (1)
  - Drug reaction with eosinophilia and systemic symptoms [Unknown]
